FAERS Safety Report 9915560 (Version 2)
Quarter: 2014Q2

REPORT INFORMATION
  Report Type: Spontaneous
  Country: AR (occurrence: AR)
  Receive Date: 20140221
  Receipt Date: 20140407
  Transmission Date: 20141212
  Serious: Yes (Other)
  Sender: FDA-Public Use
  Company Number: AR-AMGEN-ARGSP2014012504

PATIENT
  Age: 51 Year
  Sex: Female

DRUGS (3)
  1. ENBREL [Suspect]
     Indication: RHEUMATOID ARTHRITIS
     Dosage: 50 MG, WEEKLY
     Route: 065
     Dates: start: 20130305
  2. DELTISONA B                        /00049601/ [Concomitant]
     Dosage: 4 MG, ONCE DAILY
  3. DICLOFENAC [Concomitant]
     Dosage: UNK

REACTIONS (3)
  - Pain in extremity [Recovering/Resolving]
  - Pain [Recovering/Resolving]
  - Arthropathy [Recovering/Resolving]
